FAERS Safety Report 13870208 (Version 2)
Quarter: 2017Q3

REPORT INFORMATION
  Report Type: Spontaneous
  Country: US (occurrence: US)
  Receive Date: 20170815
  Receipt Date: 20170920
  Transmission Date: 20171127
  Serious: Yes (Death, Hospitalization, Other)
  Sender: FDA-Public Use
  Company Number: US-TEVA-797073USA

PATIENT
  Age: 60 Year
  Sex: Male

DRUGS (2)
  1. PROAIR HFA [Suspect]
     Active Substance: ALBUTEROL SULFATE
     Route: 065
  2. CODEINE [Concomitant]
     Active Substance: CODEINE

REACTIONS (4)
  - Acute respiratory failure [Unknown]
  - Hypercapnia [Unknown]
  - Cardiac arrest [Fatal]
  - Hypoxia [Unknown]

NARRATIVE: CASE EVENT DATE: 20170619
